FAERS Safety Report 5744789-8 (Version None)
Quarter: 2008Q2

REPORT INFORMATION
  Report Type: 
  Country: None (occurrence: None)
  Receive Date: 20080520
  Receipt Date: 20080513
  Transmission Date: 20081010
  Serious: Yes (Hospitalization, Other)
  Sender: FDA-Public Use
  Company Number: US-MERCK-0705USA02841

PATIENT
  Age: 69 Year
  Sex: Female
  Weight: 66 kg

DRUGS (2)
  1. FOSAMAX [Suspect]
     Indication: OSTEOPOROSIS
     Route: 048
     Dates: start: 19950101, end: 20060101
  2. ACTONEL [Suspect]
     Route: 065

REACTIONS (58)
  - ACUTE PRERENAL FAILURE [None]
  - ADVERSE DRUG REACTION [None]
  - ANAEMIA [None]
  - ANXIETY [None]
  - ARTHROPATHY [None]
  - BACK PAIN [None]
  - BLINDNESS UNILATERAL [None]
  - BONE CYST [None]
  - BRAIN NEOPLASM [None]
  - BUNION [None]
  - CARDIAC FAILURE CONGESTIVE [None]
  - CAROTID ARTERY DISEASE [None]
  - CEREBRAL ATROPHY [None]
  - CEREBRAL ISCHAEMIA [None]
  - CERVICOBRACHIAL SYNDROME [None]
  - CHEST PAIN [None]
  - COLONIC POLYP [None]
  - COMPRESSION FRACTURE [None]
  - CONNECTIVE TISSUE INFLAMMATION [None]
  - CORONARY ARTERY DISEASE [None]
  - DELIRIUM [None]
  - DEPRESSION [None]
  - DRUG HYPERSENSITIVITY [None]
  - DYSPHAGIA [None]
  - FISTULA [None]
  - HERPES VIRUS INFECTION [None]
  - HYPERCHOLESTEROLAEMIA [None]
  - HYPERTENSION [None]
  - HYPOAESTHESIA ORAL [None]
  - INTERVERTEBRAL DISC DISORDER [None]
  - JAW DISORDER [None]
  - JAW FRACTURE [None]
  - MELAENA [None]
  - METABOLIC ENCEPHALOPATHY [None]
  - MYOCARDIAL ISCHAEMIA [None]
  - NERVE INJURY [None]
  - NIGHTMARE [None]
  - ORAL DISORDER [None]
  - ORAL INFECTION [None]
  - OSTEOARTHRITIS [None]
  - PAIN [None]
  - PAIN IN EXTREMITY [None]
  - PAIN IN JAW [None]
  - PARAESTHESIA [None]
  - PLEURAL EFFUSION [None]
  - PLEURISY [None]
  - RASH [None]
  - RENAL FAILURE [None]
  - ROAD TRAFFIC ACCIDENT [None]
  - SINUS DISORDER [None]
  - SWELLING [None]
  - TEMPOROMANDIBULAR JOINT SYNDROME [None]
  - TENDONITIS [None]
  - THROAT IRRITATION [None]
  - TRIGEMINAL NEURALGIA [None]
  - TRISMUS [None]
  - VISION BLURRED [None]
  - WOUND [None]
